FAERS Safety Report 8051957-1 (Version None)
Quarter: 2012Q1

REPORT INFORMATION
  Report Type: 
  Country: None (occurrence: None)
  Receive Date: 20120118
  Receipt Date: 20120112
  Transmission Date: 20120608
  Serious: Yes (Other)
  Sender: FDA-Public Use
  Company Number: JP-JNJFOC-20120101945

PATIENT
  Age: 85 Year
  Sex: Female

DRUGS (2)
  1. FENTANYL-100 [Suspect]
     Indication: CANCER PAIN
     Route: 062
     Dates: start: 20120105
  2. ARICEPT [Concomitant]
     Indication: DEMENTIA
     Route: 048

REACTIONS (1)
  - DEMENTIA [None]
